FAERS Safety Report 12848817 (Version 1)
Quarter: 2016Q4

REPORT INFORMATION
  Report Type: Spontaneous
  Country: US (occurrence: US)
  Receive Date: 20161014
  Receipt Date: 20161014
  Transmission Date: 20170207
  Serious: No
  Sender: FDA-Public Use
  Company Number: US-JNJFOC-20160809136

PATIENT
  Sex: Female
  Weight: 54.43 kg

DRUGS (5)
  1. TYLENOL [Suspect]
     Active Substance: ACETAMINOPHEN
     Indication: NEURALGIA
     Route: 048
     Dates: start: 201604, end: 201606
  2. LYRICA [Concomitant]
     Active Substance: PREGABALIN
     Indication: POST HERPETIC NEURALGIA
     Route: 048
     Dates: start: 201606
  3. TYLENOL [Suspect]
     Active Substance: ACETAMINOPHEN
     Route: 048
  4. ALEVE [Concomitant]
     Active Substance: NAPROXEN SODIUM
     Indication: NEURALGIA
     Route: 065
  5. GABAPENTIN. [Concomitant]
     Active Substance: GABAPENTIN
     Indication: POST HERPETIC NEURALGIA
     Route: 048
     Dates: start: 201604

REACTIONS (2)
  - Off label use [Unknown]
  - Drug ineffective for unapproved indication [Unknown]

NARRATIVE: CASE EVENT DATE: 2016
